FAERS Safety Report 14546961 (Version 3)
Quarter: 2018Q1

REPORT INFORMATION
  Report Type: Spontaneous
  Country: US (occurrence: US)
  Receive Date: 20180219
  Receipt Date: 20180308
  Transmission Date: 20180509
  Serious: No
  Sender: FDA-Public Use
  Company Number: US-PFIZER INC-2018069336

PATIENT
  Age: 49 Year
  Sex: Male
  Weight: 87.54 kg

DRUGS (4)
  1. NEURONTIN [Suspect]
     Active Substance: GABAPENTIN
     Indication: NEURALGIA
     Dosage: UNK UNK, 3X/DAY (900-1200 MG 3X^S DAY)
     Dates: start: 20180202, end: 20180225
  2. LYRICA [Concomitant]
     Active Substance: PREGABALIN
     Indication: NEURALGIA
     Dosage: 100 MG, 3X/DAY
  3. OXYMORPHONE [Concomitant]
     Active Substance: OXYMORPHONE
     Dosage: 20 MG, 2X/DAY (20 MG ER 2X^S DAY)
  4. OXYMORPHONE [Concomitant]
     Active Substance: OXYMORPHONE
     Dosage: 5 MG, 2X/DAY (5 MG TP NULL-2X^S DAY)

REACTIONS (3)
  - Intentional product misuse [Not Recovered/Not Resolved]
  - Drug ineffective for unapproved indication [Not Recovered/Not Resolved]
  - Drug dose omission [Not Recovered/Not Resolved]

NARRATIVE: CASE EVENT DATE: 201802
